FAERS Safety Report 14615619 (Version 2)
Quarter: 2018Q3

REPORT INFORMATION
  Report Type: Report from Study
  Country: None (occurrence: CH)
  Receive Date: 20180309
  Receipt Date: 20180831
  Transmission Date: 20181010
  Serious: Yes (Hospitalization, Other)
  Sender: FDA-Public Use
  Company Number: CH-ABBVIE-18K-151-2276971-00

PATIENT
  Age: 75 Year
  Sex: Male
  Weight: 52.3 kg

DRUGS (28)
  1. DUODOPA [Suspect]
     Active Substance: CARBIDOPA\LEVODOPA
     Dosage: MD 3ML CRD 3.8ML/H CR NIGHT 2ML/H ED 2.4ML 24H THERAPY
     Route: 050
     Dates: start: 20171018, end: 20180630
  2. PRONTOLAX [Concomitant]
     Active Substance: BISACODYL
     Indication: PRODUCT USED FOR UNKNOWN INDICATION
     Dosage: TUESDAY, FRIDAY AT 7AM
     Route: 065
  3. NOVASOURCE [Concomitant]
     Indication: PRODUCT USED FOR UNKNOWN INDICATION
     Dosage: 1.5KCAL/ML?AS NEEDED, UP TO 3X250ML
     Route: 065
  4. ZESTRIL [Concomitant]
     Active Substance: LISINOPRIL
     Indication: PRODUCT USED FOR UNKNOWN INDICATION
     Dosage: AT 8 AM
     Route: 048
  5. VITAMIN D3 STREULI [Concomitant]
     Active Substance: CHOLECALCIFEROL
     Indication: PRODUCT USED FOR UNKNOWN INDICATION
     Dosage: 4000 IE /ML,  AT 8AM
  6. ASPIRIN CARDIO [Concomitant]
     Active Substance: ASPIRIN
     Indication: PRODUCT USED FOR UNKNOWN INDICATION
     Dosage: AT 8AM
     Route: 048
  7. TRANSIPEG [Concomitant]
     Indication: PRODUCT USED FOR UNKNOWN INDICATION
     Dosage: MORNING, EVENING
     Route: 065
  8. TOREM [Concomitant]
     Active Substance: TORSEMIDE
     Indication: PRODUCT USED FOR UNKNOWN INDICATION
     Dosage: IN THE MORNINGS
     Route: 065
  9. DUODOPA [Suspect]
     Active Substance: CARBIDOPA\LEVODOPA
     Dosage: MD 2ML CRD 4ML/H CRN 2ML/H ED 2.4ML 24H THERAPY
     Route: 050
     Dates: start: 20170630, end: 20171018
  10. EXELON [Concomitant]
     Active Substance: RIVASTIGMINE TARTRATE
     Indication: PRODUCT USED FOR UNKNOWN INDICATION
     Dosage: 9.5MG/24H
     Route: 061
  11. MOVICOL [Concomitant]
     Active Substance: POLYETHYLENE GLYCOL 3350\POTASSIUM CHLORIDE\SODIUM BICARBONATE\SODIUM CHLORIDE
     Indication: PRODUCT USED FOR UNKNOWN INDICATION
     Dosage: SACHET, AT 9AM, 2PM
     Route: 048
  12. DULCOLAX NOS [Concomitant]
     Active Substance: BISACODYL OR DOCUSATE SODIUM
     Indication: PRODUCT USED FOR UNKNOWN INDICATION
     Dosage: AT 8AM
  13. DUODOPA [Suspect]
     Active Substance: CARBIDOPA\LEVODOPA
     Indication: PARKINSON^S DISEASE
     Dosage: MD 3.0ML CD DAY 4.0ML/H CD NIGHT 2.0ML/H ED 2.4ML UP TO 4 TIMES A DAY
     Route: 050
     Dates: start: 20130812, end: 20170630
  14. CLEXANE [Concomitant]
     Active Substance: ENOXAPARIN SODIUM
     Indication: PRODUCT USED FOR UNKNOWN INDICATION
     Dosage: 0.2ML/20MG, AT 6PM
     Route: 058
  15. DUODOPA [Suspect]
     Active Substance: CARBIDOPA\LEVODOPA
     Dosage: MD 3ML CRD 3.8ML/H CRN 2ML/H ED 2.4ML 24H THERAPY
     Route: 050
     Dates: start: 20171018
  16. TORASEMID [Concomitant]
     Active Substance: TORSEMIDE
     Indication: PRODUCT USED FOR UNKNOWN INDICATION
     Dosage: AT 8AM
     Route: 048
  17. MADOPAR DR [Concomitant]
     Indication: PRODUCT USED FOR UNKNOWN INDICATION
  18. PICATO [Concomitant]
     Active Substance: INGENOL MEBUTATE
     Indication: PRODUCT USED FOR UNKNOWN INDICATION
     Route: 003
  19. LISINOPRIL. [Concomitant]
     Active Substance: LISINOPRIL
     Indication: PRODUCT USED FOR UNKNOWN INDICATION
     Dosage: IN THE MORNING
     Route: 065
  20. VI?DE 3 [Concomitant]
     Active Substance: CHOLECALCIFEROL
     Indication: PRODUCT USED FOR UNKNOWN INDICATION
     Dosage: WEDNESDAY AT 12PM
     Route: 065
  21. DUODOPA [Suspect]
     Active Substance: CARBIDOPA\LEVODOPA
     Dosage: MD 3ML CDR 2.3ML/H CR NIGHT 2ML/H ED 1ML 24H THERAPY
     Route: 050
     Dates: start: 20180630
  22. PANTOZOL [Concomitant]
     Active Substance: PANTOPRAZOLE SODIUM
     Indication: PRODUCT USED FOR UNKNOWN INDICATION
     Dosage: AT 8AM
     Route: 048
  23. FERRUM HAUSMANN [Concomitant]
     Active Substance: FERROUS FUMARATE
     Indication: PRODUCT USED FOR UNKNOWN INDICATION
     Dosage: AT 8AM
     Route: 048
  24. EXELON [Concomitant]
     Active Substance: RIVASTIGMINE TARTRATE
     Dosage: REDUCED DOSING, AT 8AM
     Route: 061
  25. MALTOFER [Concomitant]
     Indication: PRODUCT USED FOR UNKNOWN INDICATION
     Dosage: MORNING, EVENING?2.5MG PER DROP
     Route: 065
  26. DUODOPA [Suspect]
     Active Substance: CARBIDOPA\LEVODOPA
     Dosage: MD 3.0ML CD DAY 3.8ML/H CD NIGHT 2.0ML/H ED 2.4ML UP TO 4 TIMES A DAY 24H THERAPY
     Route: 050
  27. DAFALGAN [Concomitant]
     Active Substance: ACETAMINOPHEN
     Indication: PRODUCT USED FOR UNKNOWN INDICATION
     Dosage: AT 8AM, 12PM, 6 PM, 9PM
     Route: 048
  28. TARGIN [Concomitant]
     Active Substance: NALOXONE HYDROCHLORIDE\OXYCODONE HYDROCHLORIDE
     Indication: PRODUCT USED FOR UNKNOWN INDICATION

REACTIONS (30)
  - Chills [Unknown]
  - Salivary hypersecretion [Unknown]
  - Urinary incontinence [Unknown]
  - Normochromic normocytic anaemia [Unknown]
  - Iron deficiency [Unknown]
  - Hypertonia [Unknown]
  - Cognitive disorder [Unknown]
  - Hypermobility syndrome [Unknown]
  - Urinary tract obstruction [Unknown]
  - Diverticulum intestinal [Unknown]
  - Dementia [Not Recovered/Not Resolved]
  - Motor dysfunction [Not Recovered/Not Resolved]
  - General physical health deterioration [Unknown]
  - Squamous cell carcinoma of skin [Unknown]
  - Anal incontinence [Unknown]
  - Dizziness [Unknown]
  - Confusional state [Unknown]
  - Dysarthria [Unknown]
  - Drug dose omission [Unknown]
  - Paranoia [Unknown]
  - Hypophagia [Unknown]
  - Brain neoplasm [Unknown]
  - Basal cell carcinoma [Unknown]
  - Mental disorder [Unknown]
  - Reduced facial expression [Unknown]
  - Pneumonia [Recovered/Resolved]
  - Tremor [Unknown]
  - Skin lesion [Unknown]
  - Hallucination [Unknown]
  - Dyskinesia [Recovering/Resolving]

NARRATIVE: CASE EVENT DATE: 201709
